FAERS Safety Report 25956900 (Version 2)
Quarter: 2025Q4

REPORT INFORMATION
  Report Type: Report from Study
  Country: JP (occurrence: JP)
  Receive Date: 20251024
  Receipt Date: 20251120
  Transmission Date: 20260118
  Serious: Yes (Other)
  Sender: GILEAD
  Company Number: JP-GILEAD-2025-0733366

PATIENT
  Age: 50 Year
  Sex: Female

DRUGS (2)
  1. SACITUZUMAB GOVITECAN-HZIY [Suspect]
     Active Substance: SACITUZUMAB GOVITECAN-HZIY
     Indication: Triple negative breast cancer
     Dosage: UNK
     Route: 065
  2. SACITUZUMAB GOVITECAN-HZIY [Suspect]
     Active Substance: SACITUZUMAB GOVITECAN-HZIY
     Dosage: UNK
     Route: 065

REACTIONS (7)
  - Leukopenia [Unknown]
  - Neutropenia [Unknown]
  - Triple negative breast cancer [Unknown]
  - Neuropathy peripheral [Unknown]
  - Lymphopenia [Unknown]
  - Anaemia [Unknown]
  - Diarrhoea [Unknown]
